FAERS Safety Report 9184669 (Version 1)
Quarter: 2013Q1

REPORT INFORMATION
  Report Type: Spontaneous
  Country: IL (occurrence: IL)
  Receive Date: 20130324
  Receipt Date: 20130324
  Transmission Date: 20140127
  Serious: Yes (Other)
  Sender: FDA-Public Use
  Company Number: IL-ROCHE-1203685

PATIENT
  Age: 58 Year
  Sex: Female

DRUGS (13)
  1. AVASTIN [Suspect]
     Indication: COLON CANCER METASTATIC
     Route: 065
     Dates: start: 20110530
  2. AVASTIN [Suspect]
     Route: 065
     Dates: start: 201202
  3. LEUCOVORIN CALCIUM [Suspect]
     Indication: COLON CANCER METASTATIC
     Route: 065
     Dates: start: 20110530
  4. LEUCOVORIN CALCIUM [Suspect]
     Route: 065
     Dates: start: 201202
  5. LEUCOVORIN CALCIUM [Suspect]
     Route: 065
     Dates: start: 201210
  6. ERBITUX [Suspect]
     Indication: COLON CANCER METASTATIC
     Route: 065
     Dates: start: 201210
  7. CPT-11 [Suspect]
     Indication: COLON CANCER METASTATIC
     Route: 065
     Dates: start: 20110530
  8. CPT-11 [Suspect]
     Route: 065
     Dates: start: 201210
  9. 5-FLUOROURACIL [Suspect]
     Indication: COLON CANCER METASTATIC
     Route: 065
     Dates: start: 20110530
  10. 5-FLUOROURACIL [Suspect]
     Route: 065
     Dates: start: 201202
  11. 5-FLUOROURACIL [Suspect]
     Route: 065
     Dates: start: 201210
  12. OXALIPLATIN [Suspect]
     Indication: COLON CANCER METASTATIC
     Route: 065
     Dates: start: 201202
  13. REGORAFENIB [Suspect]
     Indication: COLON CANCER METASTATIC
     Route: 065
     Dates: start: 201302

REACTIONS (7)
  - Pyrexia [Unknown]
  - Diarrhoea [Unknown]
  - Mucosal inflammation [Unknown]
  - Neutropenia [Unknown]
  - Disease progression [Unknown]
  - Asthenia [Unknown]
  - Liver function test abnormal [Unknown]
